FAERS Safety Report 23273402 (Version 1)
Quarter: 2023Q4

REPORT INFORMATION
  Report Type: Report from Study
  Country: DK (occurrence: DK)
  Receive Date: 20231207
  Receipt Date: 20231207
  Transmission Date: 20240110
  Serious: Yes (Hospitalization)
  Sender: FDA-Public Use
  Company Number: DK-GENMAB-2022-00367

PATIENT
  Age: 74 Year
  Sex: Female
  Weight: 62.3 kg

DRUGS (17)
  1. EPCORITAMAB [Suspect]
     Active Substance: EPCORITAMAB
     Indication: Diffuse large B-cell lymphoma stage II
     Dosage: C1D1
     Route: 058
     Dates: start: 20210330, end: 20210330
  2. EPCORITAMAB [Suspect]
     Active Substance: EPCORITAMAB
     Dosage: C1D8
     Route: 058
     Dates: start: 20210406, end: 20210406
  3. EPCORITAMAB [Suspect]
     Active Substance: EPCORITAMAB
     Dosage: C1D15 - C3D22
     Route: 058
     Dates: start: 20210413, end: 20210615
  4. EPCORITAMAB [Suspect]
     Active Substance: EPCORITAMAB
     Dosage: C4D1 - C9D15
     Route: 058
     Dates: start: 20210622, end: 20211123
  5. EPCORITAMAB [Suspect]
     Active Substance: EPCORITAMAB
     Dosage: C10D1-C13D1
     Route: 058
     Dates: start: 20211207, end: 20220301
  6. AMLODIPINE [Concomitant]
     Active Substance: AMLODIPINE BESYLATE
     Dosage: 10 MILLIGRAM, QD
     Route: 048
     Dates: start: 20200331
  7. GABAPENTIN [Concomitant]
     Active Substance: GABAPENTIN
     Indication: Herpes zoster
     Dosage: 300 MILLIGRAM, TID
     Route: 048
     Dates: start: 20220329, end: 20220503
  8. IBUPROFEN [Concomitant]
     Active Substance: IBUPROFEN
     Dosage: 600 MILLIGRAM, PRN
     Route: 048
     Dates: start: 20200311
  9. POTASSIUM CHLORIDE [Concomitant]
     Active Substance: POTASSIUM CHLORIDE
     Dosage: 750 MILLIGRAM, BID
     Route: 048
     Dates: start: 20210525
  10. OXAZEPAM [Concomitant]
     Active Substance: OXAZEPAM
     Indication: Insomnia
     Dosage: 15 MILLIGRAM, QD (QN)
     Route: 048
     Dates: start: 20220316, end: 20220329
  11. ACETAMINOPHEN [Concomitant]
     Active Substance: ACETAMINOPHEN
     Indication: Prophylaxis
     Dosage: 1000 MILLIGRAM, PRN
     Route: 048
     Dates: start: 20181024
  12. SIMVASTATIN [Concomitant]
     Active Substance: SIMVASTATIN
     Indication: Prophylaxis
     Dosage: 10 MILLIGRAM, QD
     Route: 048
     Dates: start: 2001
  13. TRAMADOL [Concomitant]
     Active Substance: TRAMADOL\TRAMADOL HYDROCHLORIDE
     Indication: Herpes zoster
     Dosage: 150 MILLIGRAM, QD (QPM)
     Route: 048
     Dates: start: 20220316, end: 20220505
  14. VALACYCLOVIR HYDROCHLORIDE [Concomitant]
     Active Substance: VALACYCLOVIR HYDROCHLORIDE
     Indication: Herpes zoster
     Dosage: 500 MILLIGRAM, BID
     Route: 048
     Dates: start: 20220316, end: 20220325
  15. VALACYCLOVIR HYDROCHLORIDE [Concomitant]
     Active Substance: VALACYCLOVIR HYDROCHLORIDE
     Dosage: 1000 MILLIGRAM, TID
     Route: 048
     Dates: start: 20220329, end: 20220412
  16. ZOPICLONE [Concomitant]
     Active Substance: ZOPICLONE
     Indication: Insomnia
     Dosage: 7.5 MILLIGRAM, QD (QN)
     Route: 048
     Dates: start: 20220329
  17. ACRIVASTINE [Concomitant]
     Active Substance: ACRIVASTINE
     Dosage: 8 MILLIGRAM, QD
     Route: 048
     Dates: start: 20150901

REACTIONS (1)
  - Post herpetic neuralgia [Recovered/Resolved]

NARRATIVE: CASE EVENT DATE: 20220408
